FAERS Safety Report 5679622-6 (Version None)
Quarter: 2008Q1

REPORT INFORMATION
  Report Type: 
  Country: None (occurrence: None)
  Receive Date: 20080325
  Receipt Date: 20080313
  Transmission Date: 20080703
  Serious: Yes (Other)
  Sender: FDA-Public Use
  Company Number: GB-PFIZER INC-2008025065

PATIENT
  Age: 60 Year
  Sex: Male

DRUGS (7)
  1. CHAMPIX [Suspect]
     Route: 048
     Dates: start: 20080104, end: 20080227
  2. ALENDRONIC ACID [Concomitant]
  3. CALCICHEW-D3 [Concomitant]
  4. COCOIS [Concomitant]
  5. CO-PROXAMOL [Concomitant]
  6. LEVOTHYROXINE SODIUM [Concomitant]
  7. RANITIDINE [Concomitant]

REACTIONS (1)
  - PSORIASIS [None]
